FAERS Safety Report 19072553 (Version 1)
Quarter: 2021Q1

REPORT INFORMATION
  Report Type: Other
  Country: NL (occurrence: NL)
  Receive Date: 20210330
  Receipt Date: 20210330
  Transmission Date: 20210420
  Serious: Yes (Other)
  Sender: FDA-Public Use
  Company Number: NL-APOTEX-2021AP007354

PATIENT
  Sex: Male

DRUGS (3)
  1. PAROXETINE TABLET [Suspect]
     Active Substance: PAROXETINE
     Indication: SUICIDAL IDEATION
  2. PAROXETINE TABLET [Suspect]
     Active Substance: PAROXETINE
     Indication: DEPRESSION
     Dosage: 20 MILLIGRAM, QD,
     Route: 065
     Dates: start: 202004, end: 20210101
  3. SYMBICORT [Concomitant]
     Active Substance: BUDESONIDE\FORMOTEROL FUMARATE DIHYDRATE
     Indication: PRODUCT USED FOR UNKNOWN INDICATION
     Dosage: UNK (INHALATION POWDER, 100/6 /UG / DOSE (MICROGRAMS PER DOSE)
     Route: 065

REACTIONS (1)
  - Bruxism [Recovered/Resolved]
